FAERS Safety Report 4498960-6 (Version None)
Quarter: 2004Q4

REPORT INFORMATION
  Report Type: 
  Country: None (occurrence: None)
  Receive Date: 20041108
  Receipt Date: 20041028
  Transmission Date: 20050328
  Serious: Yes (Hospitalization)
  Sender: FDA-Public Use
  Company Number: 2004-120213-NL

PATIENT
  Age: 56 Year
  Sex: Female

DRUGS (6)
  1. MIRTAZAPINE [Suspect]
     Dosage: DF
  2. MEPRONIZINE [Suspect]
     Dosage: DF ORAL
     Route: 048
  3. DIAZEPAM [Suspect]
     Dosage: DF ORAL
     Route: 048
  4. BROMAZEPAM [Suspect]
     Dosage: DF ORAL
     Route: 048
  5. NORDAZEPAM [Suspect]
     Dosage: DF ORAL
     Route: 048
  6. BUSPIRONE HCL [Suspect]
     Dosage: DF ORAL
     Route: 048

REACTIONS (13)
  - ALANINE AMINOTRANSFERASE INCREASED [None]
  - ASPARTATE AMINOTRANSFERASE INCREASED [None]
  - BLOOD ALKALINE PHOSPHATASE INCREASED [None]
  - BLOOD CREATINE PHOSPHOKINASE INCREASED [None]
  - BLOOD LACTATE DEHYDROGENASE INCREASED [None]
  - BODY TEMPERATURE INCREASED [None]
  - C-REACTIVE PROTEIN INCREASED [None]
  - FALL [None]
  - LOSS OF CONSCIOUSNESS [None]
  - LUNG DISORDER [None]
  - MALAISE [None]
  - OVERDOSE [None]
  - SOMNOLENCE [None]
